FAERS Safety Report 19099292 (Version 1)
Quarter: 2021Q2

REPORT INFORMATION
  Report Type: Report from Study
  Country: None (occurrence: IT)
  Receive Date: 20210406
  Receipt Date: 20210406
  Transmission Date: 20210717
  Serious: Yes (Death)
  Sender: FDA-Public Use
  Company Number: IT-ABBVIE-21K-083-3848397-00

PATIENT
  Age: 81 Year
  Sex: Female

DRUGS (2)
  1. DUODOPA [Suspect]
     Active Substance: CARBIDOPA\LEVODOPA
  2. DUODOPA [Suspect]
     Active Substance: CARBIDOPA\LEVODOPA
     Indication: PARKINSON^S DISEASE
     Dosage: PUMP SETTING: MD:9+3; CR:2,3 (9H); ED:0 ?20 MG/ML 5 MG/ML GEL
     Route: 050
     Dates: start: 20101020

REACTIONS (3)
  - Infected skin ulcer [Fatal]
  - Decubitus ulcer [Fatal]
  - General physical health deterioration [Fatal]

NARRATIVE: CASE EVENT DATE: 202104
